FAERS Safety Report 9705977 (Version 1)
Quarter: 2013Q4

REPORT INFORMATION
  Report Type: Spontaneous
  Country: JP (occurrence: JP)
  Receive Date: 20131122
  Receipt Date: 20131122
  Transmission Date: 20140711
  Serious: Yes (Other)
  Sender: FDA-Public Use
  Company Number: JP-GLAXOSMITHKLINE-B0947309A

PATIENT
  Age: 70 Year
  Sex: Male
  Weight: 65 kg

DRUGS (3)
  1. VALTREX [Suspect]
     Indication: HERPES ZOSTER
     Dosage: 1000MG THREE TIMES PER DAY
     Route: 048
     Dates: start: 20131118, end: 20131119
  2. METGLUCO [Concomitant]
     Indication: DIABETES MELLITUS
     Route: 048
  3. SEIBULE [Concomitant]
     Indication: DIABETES MELLITUS
     Route: 048

REACTIONS (4)
  - Encephalopathy [Not Recovered/Not Resolved]
  - Overdose [Unknown]
  - Abnormal behaviour [Unknown]
  - Anger [Unknown]
